FAERS Safety Report 9459761 (Version 4)
Quarter: 2013Q4

REPORT INFORMATION
  Report Type: Spontaneous
  Country: US (occurrence: US)
  Receive Date: 20130815
  Receipt Date: 20131112
  Transmission Date: 20140711
  Serious: Yes (Hospitalization, Other)
  Sender: FDA-Public Use
  Company Number: US-ASTELLAS-2013US008471

PATIENT
  Age: 56 Year
  Sex: Female
  Weight: 83.1 kg

DRUGS (79)
  1. PROGRAF [Suspect]
     Indication: STEM CELL TRANSPLANT
     Dosage: 1 MG, UID/QD
     Route: 048
     Dates: start: 20130228
  2. PROGRAF [Suspect]
     Dosage: 3 MG, BID
     Route: 048
  3. PROGRAF [Suspect]
     Dosage: 0.5 MG, BID
     Route: 048
     Dates: start: 20130726, end: 20130823
  4. PROGRAF [Suspect]
     Dosage: 1 MG, BID
     Route: 048
     Dates: start: 20130320, end: 20130329
  5. PROGRAF [Suspect]
     Dosage: 0.5 MG, BID
     Route: 048
     Dates: start: 20130329, end: 20130404
  6. PROGRAF [Suspect]
     Dosage: 0.25 MG, BID
     Route: 048
     Dates: start: 20130404, end: 20130410
  7. PROGRAF [Suspect]
     Dosage: 0.5 (1ML)/0.25 MG (0.5ML) BID
     Route: 048
     Dates: start: 20130410, end: 20130417
  8. PROGRAF [Suspect]
     Dosage: 0.5 MG, BID
     Route: 048
     Dates: start: 20130417, end: 20130502
  9. PROGRAF [Suspect]
     Dosage: 2.5/2 MG BID
     Route: 048
     Dates: start: 20130516, end: 20130523
  10. PROGRAF [Suspect]
     Dosage: 2.5 MG, BID
     Route: 048
     Dates: start: 20130523, end: 20130530
  11. PROGRAF [Suspect]
     Dosage: 2.5 MG, BID
     Route: 048
     Dates: start: 20130705
  12. PROGRAF [Suspect]
     Dosage: 3.5/3 MG
     Route: 048
     Dates: start: 20130627
  13. PROGRAF [Suspect]
     Dosage: 3 MG, BID
     Route: 048
     Dates: start: 20130530, end: 20130627
  14. PROGRAF [Suspect]
     Dosage: 4 MG, BID
     Route: 048
     Dates: start: 20130630, end: 20130705
  15. PROGRAF [Suspect]
     Dosage: 1/0.5 MG
     Route: 048
     Dates: start: 20130719, end: 20130726
  16. ZYVOX [Suspect]
     Indication: CELLULITIS
     Dosage: 600 MG, BID
     Route: 048
  17. PEN-VI-K [Concomitant]
     Indication: PRODUCT USED FOR UNKNOWN INDICATION
     Dosage: 500 MG, UID/QD
     Route: 048
  18. BACTRIM [Concomitant]
     Indication: PRODUCT USED FOR UNKNOWN INDICATION
     Dosage: UNK
     Route: 048
  19. BACTRIM [Concomitant]
     Dosage: 2 DF, BID
     Route: 048
     Dates: start: 20130806, end: 201308
  20. AMOXICILLIN [Concomitant]
     Indication: DENTAL OPERATION
     Dosage: 2 G, TOTAL DOSE, 1 HOUR PRIOR TO PROCEDURES
     Route: 048
  21. MAGNESIUM [Concomitant]
     Indication: PRODUCT USED FOR UNKNOWN INDICATION
     Dosage: 8 DF, TID
     Route: 048
     Dates: start: 20130302
  22. MAGNESIUM [Concomitant]
     Dosage: 6 DF, UID/QD
     Route: 048
     Dates: start: 20130620
  23. MAGNESIUM [Concomitant]
     Dosage: 2 DF, TID
     Route: 048
     Dates: start: 20130410
  24. MAGNESIUM [Concomitant]
     Dosage: 1 DF, BID
     Dates: start: 20130327, end: 20130403
  25. MAGNESIUM [Concomitant]
     Dosage: 2 DF, BID
     Route: 048
     Dates: start: 20130403
  26. CENTRUM SILVER                     /02363801/ [Concomitant]
     Indication: PRODUCT USED FOR UNKNOWN INDICATION
     Dosage: UNK
     Route: 048
  27. OS-CAL D [Concomitant]
     Indication: PRODUCT USED FOR UNKNOWN INDICATION
     Dosage: 1 DF, BID
     Route: 065
     Dates: start: 20130509
  28. OS-CAL D [Concomitant]
     Dosage: 1 DF, TID
     Route: 065
     Dates: start: 20130320, end: 20130508
  29. VIT D3 [Concomitant]
     Indication: PRODUCT USED FOR UNKNOWN INDICATION
     Dosage: 5000 IU, 3XWEEKLY
     Route: 048
  30. CLARITIN                           /00413701/ [Concomitant]
     Indication: PRODUCT USED FOR UNKNOWN INDICATION
     Dosage: 10 MG, UID/QD
     Route: 048
     Dates: start: 20130328
  31. FLONASPRAY [Concomitant]
     Indication: PRODUCT USED FOR UNKNOWN INDICATION
     Dosage: 2 DF, PRN
     Route: 045
     Dates: start: 20130328
  32. COUMADIN                           /00014802/ [Concomitant]
     Indication: PRODUCT USED FOR UNKNOWN INDICATION
     Dosage: 5 MG, QOD
     Route: 048
     Dates: start: 20130711, end: 20130729
  33. COUMADIN                           /00014802/ [Concomitant]
     Dosage: 2.5 MG, QOD
     Route: 048
     Dates: start: 20130711, end: 20130729
  34. COUMADIN                           /00014802/ [Concomitant]
     Dosage: 2.5 MG, UID/QD
     Route: 048
     Dates: start: 20130705, end: 20130709
  35. COUMADIN                           /00014802/ [Concomitant]
     Dosage: 15 MG, UID/QD
     Route: 048
     Dates: start: 20130627, end: 20130627
  36. COUMADIN                           /00014802/ [Concomitant]
     Dosage: 12.5 MG, UID/QD
     Route: 048
     Dates: start: 20130628
  37. COUMADIN                           /00014802/ [Concomitant]
     Dosage: 12.5 MG, UID/QD
     Route: 048
     Dates: start: 20130619, end: 20130620
  38. COUMADIN                           /00014802/ [Concomitant]
     Dosage: 10 MG, UID/QD
     Route: 048
     Dates: start: 20130615, end: 20130619
  39. COUMADIN                           /00014802/ [Concomitant]
     Dosage: 1 MG, UID/QD
     Route: 048
     Dates: start: 20130509
  40. ACYCLOVIR                          /00587301/ [Concomitant]
     Indication: PRODUCT USED FOR UNKNOWN INDICATION
     Dosage: 200 MG, BID
     Route: 048
     Dates: start: 20130615, end: 20130807
  41. ACYCLOVIR                          /00587301/ [Concomitant]
     Dosage: 200 MG, BID
     Route: 048
     Dates: start: 20130812
  42. ACYCLOVIR                          /00587301/ [Concomitant]
     Dosage: 800 MG, BID
     Route: 048
  43. ACYCLOVIR                          /00587301/ [Concomitant]
     Dosage: 400 MG, BID
     Route: 048
     Dates: start: 20130425, end: 20130503
  44. PENTAMIDINE [Concomitant]
     Indication: PRODUCT USED FOR UNKNOWN INDICATION
     Dosage: 300 MG, MONTHLY
     Route: 055
     Dates: start: 20130812
  45. VANCOMYCIN [Concomitant]
     Indication: PRODUCT USED FOR UNKNOWN INDICATION
     Dosage: UNK
     Route: 042
  46. VORICONAZOLE [Concomitant]
     Indication: PRODUCT USED FOR UNKNOWN INDICATION
     Dosage: 200 MG, BID
     Route: 048
     Dates: start: 20130711, end: 20130916
  47. BUDESONIDE [Concomitant]
     Indication: PRODUCT USED FOR UNKNOWN INDICATION
     Dosage: 3 MG, UID/QD
     Route: 048
     Dates: start: 20130818, end: 20130825
  48. BUDESONIDE [Concomitant]
     Dosage: 3 MG, BID
     Dates: start: 20130630, end: 20130817
  49. PREDNISONE [Concomitant]
     Indication: PRODUCT USED FOR UNKNOWN INDICATION
     Dosage: 5 MG, UID/QD
     Route: 048
     Dates: start: 20130816
  50. PREDNISONE [Concomitant]
     Dosage: 5 MG, UID/QD
     Route: 048
     Dates: start: 20130811, end: 20130815
  51. PREDNISONE [Concomitant]
     Dosage: 20 MG, BID
     Route: 048
     Dates: start: 20130630, end: 20130710
  52. PREDNISONE [Concomitant]
     Dosage: UNK
     Route: 048
     Dates: start: 20130711
  53. BUMEX [Concomitant]
     Indication: PRODUCT USED FOR UNKNOWN INDICATION
     Dosage: 2 MG, BID
     Route: 048
     Dates: start: 20130726
  54. METOPROLOL [Concomitant]
     Indication: PRODUCT USED FOR UNKNOWN INDICATION
     Dosage: 25 MG, BID
     Route: 048
     Dates: start: 20130719
  55. PRILOSEC                           /00661201/ [Concomitant]
     Indication: PRODUCT USED FOR UNKNOWN INDICATION
     Dosage: 40 MG, BID
     Route: 048
     Dates: start: 20130711
  56. CARAFATE [Concomitant]
     Indication: PRODUCT USED FOR UNKNOWN INDICATION
     Dosage: 1 G, UID/QD
     Route: 048
     Dates: start: 20130320
  57. NOVOLOG [Concomitant]
     Indication: PRODUCT USED FOR UNKNOWN INDICATION
     Dosage: UNK
     Route: 065
  58. ZOFRAN                             /00955301/ [Concomitant]
     Indication: PRODUCT USED FOR UNKNOWN INDICATION
     Dosage: 4 MG, PRN
     Route: 048
  59. OXYCODONE [Concomitant]
     Indication: PRODUCT USED FOR UNKNOWN INDICATION
     Dosage: 5 MG, PRN
     Route: 048
     Dates: start: 20130808
  60. LACTOBACILLUS [Concomitant]
     Indication: PRODUCT USED FOR UNKNOWN INDICATION
     Dosage: 1 DF, UID/QD
     Route: 048
  61. SIMETHICONE [Concomitant]
     Indication: ABDOMINAL DISTENSION
     Dosage: 80 MG, PRN
     Route: 048
  62. AMLODIPINE [Concomitant]
     Indication: OEDEMA
     Dosage: 2.5 MG, UID/QD
     Route: 048
     Dates: start: 20130509, end: 20130719
  63. BENTYL [Concomitant]
     Indication: PRODUCT USED FOR UNKNOWN INDICATION
     Dosage: 10 MG, UID/QD
     Route: 048
  64. DAPTOMYCIN [Concomitant]
     Indication: CELLULITIS
     Dosage: 1000 MG, UNKNOWN/D
     Route: 042
     Dates: start: 20130806, end: 20130808
  65. DILAUDID [Concomitant]
     Indication: PAIN
     Dosage: 2 MG, PRN
     Route: 048
  66. FLORINEF [Concomitant]
     Indication: PRODUCT USED FOR UNKNOWN INDICATION
     Dosage: 0.1 MG, UID/QD
     Route: 048
     Dates: start: 20130716
  67. FLUCONAZOLE [Concomitant]
     Indication: PRODUCT USED FOR UNKNOWN INDICATION
     Dosage: 200 MG, UID/QD
     Route: 048
     Dates: start: 20130327, end: 20130509
  68. FLUCONAZOLE [Concomitant]
     Dosage: 400 MG, UID/QD
     Route: 048
  69. GANCICLOVIR [Concomitant]
     Indication: PRODUCT USED FOR UNKNOWN INDICATION
     Dosage: 200 MG, Q12 HOURS
     Route: 042
     Dates: start: 20130503, end: 20130517
  70. KEFLEX                             /00145501/ [Concomitant]
     Indication: CELLULITIS
     Dosage: 500 MG, UID/QD
     Route: 048
     Dates: start: 20130806
  71. LANTUS [Concomitant]
     Indication: PRODUCT USED FOR UNKNOWN INDICATION
     Dosage: 10 DF, UID/QD
     Route: 058
     Dates: start: 20130811
  72. LASIX                              /00032601/ [Concomitant]
     Indication: PRODUCT USED FOR UNKNOWN INDICATION
     Dosage: 20 MG, UID/QD
     Route: 048
     Dates: start: 20130719
  73. LOVENOX [Concomitant]
     Indication: PRODUCT USED FOR UNKNOWN INDICATION
     Dosage: 80 MG, BID
     Route: 058
     Dates: start: 20130509, end: 20130702
  74. OXYCONTIN [Concomitant]
     Indication: PRODUCT USED FOR UNKNOWN INDICATION
     Dosage: 20 MG, BID
     Route: 048
  75. PANTOPRAZOLE [Concomitant]
     Indication: PRODUCT USED FOR UNKNOWN INDICATION
     Dosage: 40 MG, TID
     Route: 048
     Dates: start: 20130509, end: 20130516
  76. PANTOPRAZOLE [Concomitant]
     Dosage: 40 MG, BID
     Dates: end: 20130508
  77. RITUXIMAB [Concomitant]
     Indication: PRODUCT USED FOR UNKNOWN INDICATION
     Dosage: 700 MG, UNKNOWN/D
     Route: 042
     Dates: start: 20130509
  78. VALCYTE [Concomitant]
     Indication: CYTOMEGALOVIRUS INFECTION
     Dosage: 900 MG, UID/QD
     Route: 048
     Dates: start: 20130517, end: 20130614
  79. ZYRTEC [Concomitant]
     Indication: CELLULITIS
     Dosage: UNK
     Route: 047

REACTIONS (62)
  - Back pain [Unknown]
  - Oedema peripheral [Unknown]
  - Gastritis [Unknown]
  - Depression [Unknown]
  - Nausea [Unknown]
  - Constipation [Unknown]
  - Anxiety [Unknown]
  - Insomnia [Unknown]
  - Rash [Recovered/Resolved]
  - Feeling abnormal [Unknown]
  - Off label use [Unknown]
  - Exposure to communicable disease [Unknown]
  - Mucosal inflammation [Unknown]
  - Pulmonary embolism [Unknown]
  - Cushingoid [Unknown]
  - Haematocrit decreased [Unknown]
  - Rash maculo-papular [Unknown]
  - Renal failure [Recovering/Resolving]
  - Cytomegalovirus infection [Recovered/Resolved]
  - Hypertension [Unknown]
  - Epstein-Barr viraemia [Recovered/Resolved]
  - Cytomegalovirus viraemia [Recovered/Resolved]
  - Clostridium difficile colitis [Unknown]
  - Bacteraemia [Unknown]
  - Graft versus host disease [Recovering/Resolving]
  - Infection [Unknown]
  - Diarrhoea [Recovered/Resolved]
  - Mental status changes [Unknown]
  - Cellulitis [Unknown]
  - Platelet count decreased [Unknown]
  - Enterococcal infection [Unknown]
  - Candida infection [Unknown]
  - Nail disorder [Unknown]
  - Conjunctival disorder [Unknown]
  - Lymphadenopathy [Unknown]
  - Defaecation urgency [Unknown]
  - Contusion [Recovering/Resolving]
  - Injection site bruising [Unknown]
  - Hypothyroidism [Unknown]
  - Swelling face [Unknown]
  - Dysmenorrhoea [Unknown]
  - Frequent bowel movements [Unknown]
  - Pre-eclampsia [Unknown]
  - Toxicity to various agents [Unknown]
  - Dental caries [Unknown]
  - Conjunctival oedema [Unknown]
  - Gastrointestinal disorder [Unknown]
  - Intestinal polyp [Unknown]
  - Eosinophilia [Recovered/Resolved]
  - Dry mouth [Unknown]
  - Blood testosterone decreased [Unknown]
  - Lymphopenia [Unknown]
  - Neutrophilia [Unknown]
  - Monocytosis [Unknown]
  - Colitis [Unknown]
  - Hypoaldosteronism [Unknown]
  - Immunosuppressant drug level increased [Unknown]
  - Hyperkalaemia [Unknown]
  - Hyperglycaemia [Unknown]
  - Gastrooesophageal reflux disease [Unknown]
  - Diarrhoea [Unknown]
  - Abdominal pain [Unknown]
